FAERS Safety Report 11868629 (Version 3)
Quarter: 2016Q1

REPORT INFORMATION
  Report Type: Spontaneous
  Country: RU (occurrence: RU)
  Receive Date: 20151225
  Receipt Date: 20160215
  Transmission Date: 20160526
  Serious: Yes (Hospitalization)
  Sender: FDA-Public Use
  Company Number: RU-ROCHE-1682188

PATIENT
  Sex: Female

DRUGS (6)
  1. MABTHERA [Suspect]
     Active Substance: RITUXIMAB
     Route: 042
     Dates: start: 201002, end: 201202
  2. CYCLOPHOSPHANE [Concomitant]
     Dosage: 4 CYCLES
     Route: 042
     Dates: start: 201509, end: 201601
  3. MABTHERA [Suspect]
     Active Substance: RITUXIMAB
     Route: 042
     Dates: start: 201509, end: 201511
  4. PREDNISOLON [Concomitant]
     Active Substance: PREDNISOLONE
     Dosage: 4 CYCLES
     Route: 030
     Dates: start: 201509, end: 201601
  5. MABTHERA [Suspect]
     Active Substance: RITUXIMAB
     Indication: B-CELL LYMPHOMA
     Route: 042
     Dates: start: 200909, end: 200912
  6. VINCRISTINE [Concomitant]
     Active Substance: VINCRISTINE
     Dosage: 4 CYCLES
     Route: 042
     Dates: start: 201509, end: 201601

REACTIONS (7)
  - Progressive multifocal leukoencephalopathy [Recovering/Resolving]
  - Mental disorder [Recovering/Resolving]
  - Brain oedema [Not Recovered/Not Resolved]
  - Encephalopathy [Unknown]
  - Demyelination [Not Recovered/Not Resolved]
  - Hallucination [Recovering/Resolving]
  - Neurological symptom [Recovering/Resolving]

NARRATIVE: CASE EVENT DATE: 2015
